FAERS Safety Report 4755421-4 (Version None)
Quarter: 2005Q3

REPORT INFORMATION
  Report Type: 
  Country: None (occurrence: None)
  Receive Date: 20050826
  Receipt Date: 20050826
  Transmission Date: 20060218
  Serious: No
  Sender: FDA-Public Use
  Company Number: None

PATIENT
  Sex: Female

DRUGS (3)
  1. LYMPHAZURIN [Suspect]
     Indication: BIOPSY BREAST
     Dosage: INJECTED INTO BREAST TISSUE
     Dates: start: 20050501
  2. CORTICOSTEROID [Concomitant]
  3. BENADRYL [Concomitant]

REACTIONS (6)
  - BLOOD PRESSURE DECREASED [None]
  - HEART RATE INCREASED [None]
  - HYPERSENSITIVITY [None]
  - HYPOVENTILATION [None]
  - PROCEDURAL COMPLICATION [None]
  - WRONG DRUG ADMINISTERED [None]
